FAERS Safety Report 4712325-0 (Version None)
Quarter: 2005Q3

REPORT INFORMATION
  Report Type: 
  Country: None (occurrence: None)
  Receive Date: 20050711
  Receipt Date: 20050624
  Transmission Date: 20060218
  Serious: Yes (Death, Hospitalization)
  Sender: FDA-Public Use
  Company Number: 2005BI003199

PATIENT
  Age: 45 Year
  Sex: Male

DRUGS (9)
  1. AVONEX [Suspect]
     Indication: MULTIPLE SCLEROSIS
     Dosage: 30 UG QW; IM
     Route: 030
     Dates: start: 20040614, end: 20050401
  2. INSULIN [Concomitant]
  3. LOPID [Concomitant]
  4. METOPROLOL [Concomitant]
  5. DIGOXIN [Concomitant]
  6. AVANDIA [Concomitant]
  7. WARFARIN SODIUM [Concomitant]
  8. GLYBURIDE [Concomitant]
  9. METFORMIN HCL [Concomitant]

REACTIONS (4)
  - CARDIAC FAILURE CONGESTIVE [None]
  - GENERALISED OEDEMA [None]
  - MYOCARDIAL INFARCTION [None]
  - RENAL FAILURE [None]
